FAERS Safety Report 8269651 (Version 4)
Quarter: 2012Q4

REPORT INFORMATION
  Report Type: 
  Country: US (occurrence: US)
  Receive Date: 20111130
  Receipt Date: 20120828
  Transmission Date: 20130627
  Serious: Yes (Hospitalization)
  Sender: FDA-Public Use
  Company Number: US-BAYER-2011-111884

PATIENT
  Age: 21 Year
  Sex: Female
  Weight: 90.7 kg

DRUGS (12)
  1. YASMIN [Suspect]
     Indication: MENSTRUAL CYCLE MANAGEMENT
     Dosage: UNK
     Route: 048
     Dates: start: 2003, end: 2008
  2. YASMIN [Suspect]
     Indication: CONTRACEPTION
     Dosage: UNK
     Dates: start: 2008
  3. OCELLA [Suspect]
     Indication: MENSTRUAL CYCLE MANAGEMENT
     Dosage: UNK
     Dates: start: 2003, end: 2008
  4. OCELLA [Suspect]
     Indication: MENSTRUAL CYCLE MANAGEMENT
     Dosage: UNK
     Dates: start: 2008
  5. INHALERS [Concomitant]
     Dosage: UNK
     Route: 045
  6. PROVIGIL [Concomitant]
     Dosage: 200 mg,  OM
     Route: 048
  7. EFFEXOR [Concomitant]
     Indication: SOMNOLENCE
     Dosage: 75 mg, TID
     Route: 048
     Dates: start: 20091203
  8. EFFEXOR [Concomitant]
     Indication: HEADACHE
     Dosage: 150 mg, UNK
     Route: 048
  9. GUAIFENESIN/CODEINE [Concomitant]
     Route: 048
  10. AZITHROMYCIN [Concomitant]
     Dosage: 250 mg, 2 today then one daily for four days
     Route: 048
  11. RITALIN [Concomitant]
     Dosage: 5 mg, one tablet up to twice a day
     Route: 048
  12. CLONAZEPAM [Concomitant]
     Dosage: 0.5 mg, half to one tablet 30 minutes before bedtime
     Route: 048

REACTIONS (8)
  - Gallbladder disorder [None]
  - Cholecystitis chronic [None]
  - Fear [None]
  - Injury [None]
  - Pain [None]
  - Emotional distress [None]
  - Anxiety [None]
  - Psychological trauma [None]
